FAERS Safety Report 4705287-3 (Version None)
Quarter: 2005Q3

REPORT INFORMATION
  Report Type: 
  Country: None (occurrence: None)
  Receive Date: 20050701
  Receipt Date: 20050629
  Transmission Date: 20060218
  Serious: Yes (Life-Threatening, Hospitalization, Other)
  Sender: FDA-Public Use
  Company Number: US-BRISTOL-MYERS SQUIBB COMPANY-13020946

PATIENT
  Age: 68 Year
  Sex: Male
  Weight: 119 kg

DRUGS (1)
  1. CETUXIMAB [Suspect]
     Indication: OESOPHAGEAL CARCINOMA
     Dosage: 1ST DOSE, 400 MG/M2 (100 MG/50 ML). STOPPED.
     Route: 042
     Dates: start: 20050628, end: 20050628

REACTIONS (2)
  - ANAPHYLACTIC REACTION [None]
  - ELECTROCARDIOGRAM ST SEGMENT DEPRESSION [None]
